FAERS Safety Report 7606480-2 (Version None)
Quarter: 2011Q3

REPORT INFORMATION
  Report Type: 
  Country: None (occurrence: None)
  Receive Date: 20110713
  Receipt Date: 20110707
  Transmission Date: 20111222
  Serious: Yes (Other)
  Sender: FDA-Public Use
  Company Number: US-ABBOTT-11P-163-0837275-00

PATIENT
  Age: 63 Year
  Sex: Female

DRUGS (15)
  1. FLONASE [Concomitant]
     Indication: RHINORRHOEA
  2. XANAX [Concomitant]
     Indication: INSOMNIA
  3. NAPROXEN SODIUM [Concomitant]
     Indication: PAIN
  4. ATENOLOL [Concomitant]
     Indication: HYPERTENSION
  5. ATENOLOL [Concomitant]
     Dates: start: 20110501
  6. HUMIRA [Suspect]
     Indication: RHEUMATOID ARTHRITIS
  7. FLONASE [Concomitant]
     Indication: NASAL DRYNESS
     Dosage: NASAL SPRAY
  8. HUMIRA [Suspect]
     Indication: SARCOIDOSIS
     Dates: start: 20070101, end: 20110201
  9. HUMIRA [Suspect]
     Dates: start: 20110501
  10. FOLIC ACID [Concomitant]
     Indication: PRODUCT USED FOR UNKNOWN INDICATION
     Dosage: DAILY
  11. POTASSIUM [Concomitant]
     Indication: PRODUCT USED FOR UNKNOWN INDICATION
     Dosage: DAILY
  12. XANAX [Concomitant]
     Indication: ANXIETY
  13. COZAAR [Concomitant]
     Indication: HYPERTENSION
  14. METHOTREXATE [Concomitant]
     Indication: PRODUCT USED FOR UNKNOWN INDICATION
  15. ASPIRIN [Concomitant]
     Indication: PRODUCT USED FOR UNKNOWN INDICATION

REACTIONS (8)
  - CARDIAC FAILURE [None]
  - PARANASAL SINUS HYPERSECRETION [None]
  - BLOOD PRESSURE INCREASED [None]
  - RHINORRHOEA [None]
  - VIRAL INFECTION [None]
  - CARDIOMEGALY [None]
  - PARAESTHESIA [None]
  - CHEST DISCOMFORT [None]
